FAERS Safety Report 19117759 (Version 1)
Quarter: 2021Q2

REPORT INFORMATION
  Report Type: Report from Study
  Country: BR (occurrence: BR)
  Receive Date: 20210409
  Receipt Date: 20210409
  Transmission Date: 20210717
  Serious: Yes (Other)
  Sender: FDA-Public Use
  Company Number: BR-TAKEDA-BR202027014

PATIENT
  Sex: Male

DRUGS (3)
  1. HEMO?8R [Suspect]
     Active Substance: ANTIHEMOPHILIC FACTOR, HUMAN RECOMBINANT
     Dosage: 3000 INTERNATIONAL UNIT, 3/WEEK
     Route: 042
     Dates: start: 20190118
  2. METHADONE [Concomitant]
     Active Substance: METHADONE HYDROCHLORIDE
     Indication: PAIN
  3. HEMO?8R [Suspect]
     Active Substance: ANTIHEMOPHILIC FACTOR, HUMAN RECOMBINANT
     Indication: FACTOR VIII DEFICIENCY
     Dosage: 3500 INTERNATIONAL UNIT, AS REQ^D
     Route: 042
     Dates: start: 1980

REACTIONS (8)
  - Spontaneous haemorrhage [Recovering/Resolving]
  - Poor venous access [Unknown]
  - Weight decreased [Unknown]
  - Pain [Recovering/Resolving]
  - Tuberculosis [Recovering/Resolving]
  - Limb injury [Unknown]
  - Contusion [Unknown]
  - Inappropriate schedule of product administration [Unknown]
